FAERS Safety Report 6459100-7 (Version None)
Quarter: 2009Q4

REPORT INFORMATION
  Report Type: 
  Country: None (occurrence: None)
  Receive Date: 20091125
  Receipt Date: 20091125
  Transmission Date: 20100525
  Serious: Yes (Life-Threatening, Hospitalization)
  Sender: FDA-Public Use
  Company Number: None

PATIENT
  Age: 69 Year
  Sex: Male
  Weight: 84.9 kg

DRUGS (13)
  1. WARFARIN SODIUM [Suspect]
     Indication: MYOCARDIAL INFARCTION
     Dosage: 5 MG DAILY
     Dates: start: 20091104, end: 20091111
  2. PLAVIX [Suspect]
     Indication: MYOCARDIAL INFARCTION
     Dosage: 75 MG MG DAILY
     Dates: start: 20091104, end: 20091111
  3. ASPIRIN [Suspect]
     Indication: MYOCARDIAL INFARCTION
     Dosage: 81 MG DAILY
  4. POTASSIUM CHLORIDE [Concomitant]
  5. TORSEMIDE [Concomitant]
  6. LISINOPRIL [Concomitant]
  7. COUMADIN [Concomitant]
  8. CLOPIDOGREL [Concomitant]
  9. AMLODIPINE [Concomitant]
  10. CAPZASIN TOPICAL CREAM [Concomitant]
  11. NITROGLYCERIN [Concomitant]
  12. METOPROLOL TARTRATE [Concomitant]
  13. PRAVASTATN [Concomitant]

REACTIONS (3)
  - BLOOD CREATININE INCREASED [None]
  - DRUG LEVEL ABOVE THERAPEUTIC [None]
  - FAECES DISCOLOURED [None]
